APPROVED DRUG PRODUCT: VI-TWEL
Active Ingredient: CYANOCOBALAMIN
Strength: 1MG/ML
Dosage Form/Route: INJECTABLE;INJECTION
Application: N007012 | Product #002
Applicant: BAYER HEALTHCARE PHARMACEUTICALS INC
Approved: Approved Prior to Jan 1, 1982 | RLD: No | RS: No | Type: DISCN